FAERS Safety Report 4784439-0 (Version None)
Quarter: 2005Q3

REPORT INFORMATION
  Report Type: 
  Country: None (occurrence: None)
  Receive Date: 20050929
  Receipt Date: 20050929
  Transmission Date: 20060218
  Serious: No
  Sender: FDA-Public Use
  Company Number: None

PATIENT
  Age: 27 Year
  Sex: Male
  Weight: 74.8435 kg

DRUGS (3)
  1. CEFTRIAZONE  2GM  SANDOZ [Suspect]
     Indication: LYME DISEASE
     Dosage: 2GM  Q24H  IV BOLUS
     Route: 040
     Dates: start: 20050909, end: 20050925
  2. ZITHROMAX [Concomitant]
  3. ATOVAQUONE [Concomitant]

REACTIONS (1)
  - RASH [None]
